FAERS Safety Report 12934093 (Version 1)
Quarter: 2016Q4

REPORT INFORMATION
  Report Type: Spontaneous
  Country: US (occurrence: US)
  Receive Date: 20161111
  Receipt Date: 20161111
  Transmission Date: 20170207
  Serious: Yes (Other)
  Sender: FDA-Public Use
  Company Number: US-EAGLE PHARMACEUTICALS, INC.-US-2016EAG000713

PATIENT

DRUGS (8)
  1. BENDEKA [Suspect]
     Active Substance: BENDAMUSTINE HYDROCHLORIDE
     Dosage: UNK, CYCLE 4
     Route: 042
     Dates: start: 20160928, end: 2016
  2. RITUXIMAB [Suspect]
     Active Substance: RITUXIMAB
     Indication: MANTLE CELL LYMPHOMA
     Dosage: UNK, CYCLE
     Dates: start: 2016
  3. RITUXIMAB [Suspect]
     Active Substance: RITUXIMAB
     Dosage: UNK, CYCLE
     Dates: start: 2016
  4. RITUXIMAB [Suspect]
     Active Substance: RITUXIMAB
     Dosage: UNK, CYCLE
     Dates: start: 2016
  5. BENDEKA [Suspect]
     Active Substance: BENDAMUSTINE HYDROCHLORIDE
     Indication: MANTLE CELL LYMPHOMA
     Dosage: UNK, CYCLE 1
     Dates: start: 20160602
  6. BENDEKA [Suspect]
     Active Substance: BENDAMUSTINE HYDROCHLORIDE
     Dosage: UNK, CYCLE 3
     Dates: start: 20160824
  7. BENDEKA [Suspect]
     Active Substance: BENDAMUSTINE HYDROCHLORIDE
     Dosage: UNK, CYCLE 2
     Dates: start: 20160630
  8. RITUXIMAB [Suspect]
     Active Substance: RITUXIMAB
     Dosage: UNK, CYCLE
     Dates: start: 2016

REACTIONS (3)
  - Ascites [Not Recovered/Not Resolved]
  - Lymphatic disorder [Not Recovered/Not Resolved]
  - Pleural effusion [Not Recovered/Not Resolved]

NARRATIVE: CASE EVENT DATE: 201606
